FAERS Safety Report 9542323 (Version 2)
Quarter: 2014Q1

REPORT INFORMATION
  Report Type: Spontaneous
  Country: US (occurrence: None)
  Receive Date: 20130524
  Receipt Date: 20130724
  Transmission Date: 20141002
  Serious: No
  Sender: FDA-Public Use
  Company Number: PHEH2013US003891

PATIENT
  Age: 46 Year
  Sex: Female

DRUGS (8)
  1. GILENYA (FINGOLIMOD) CAPSULE, 0.5MG [Suspect]
     Indication: MULTIPLE SCLEROSIS
     Route: 048
     Dates: start: 20130213
  2. BACTRIM (SULFAMETHOXAZOLE, TRIMETHOPRIM) [Concomitant]
  3. TEMAZEPAM [Concomitant]
  4. CETRIZINE (CETIRIZINE HYDROCHLORIDE) [Concomitant]
  5. ASPIRIN (ACETYLSALICYLIC ACID) [Concomitant]
  6. VENTOLIN HFA (SALBUTAMOL SULFATE) [Concomitant]
  7. HYDROCODONE [Concomitant]
  8. FLEXERIL (CYCLOBENZAPRINE HYDROCHLORIDE) [Concomitant]

REACTIONS (1)
  - Fatigue [None]
